FAERS Safety Report 5930143-2 (Version None)
Quarter: 2008Q4

REPORT INFORMATION
  Report Type: 
  Country: None (occurrence: None)
  Receive Date: 20081024
  Receipt Date: 20081014
  Transmission Date: 20090506
  Serious: Yes (Hospitalization)
  Sender: FDA-Public Use
  Company Number: JP-PFIZER INC-2008086633

PATIENT
  Age: 64 Year
  Sex: Female

DRUGS (4)
  1. GABAPEN [Suspect]
     Indication: PAIN
     Dosage: DAILY DOSE:600MG
     Route: 048
     Dates: start: 20081008, end: 20081011
  2. MORPHINE [Concomitant]
  3. FENTANYL CITRATE [Concomitant]
  4. ALL OTHER THERAPEUTIC PRODUCTS [Concomitant]

REACTIONS (2)
  - BLOOD CREATININE INCREASED [None]
  - URINE OUTPUT DECREASED [None]
